FAERS Safety Report 8560480-7 (Version None)
Quarter: 2012Q3

REPORT INFORMATION
  Report Type: 
  Country: None (occurrence: None)
  Receive Date: 20120802
  Receipt Date: 20120730
  Transmission Date: 20120928
  Serious: Yes (Other)
  Sender: FDA-Public Use
  Company Number: GB-ROCHE-1083540

PATIENT
  Sex: Female
  Weight: 41.9 kg

DRUGS (6)
  1. ASPIRIN [Concomitant]
  2. LATANOPROST [Concomitant]
  3. MABTHERA [Suspect]
     Indication: B-CELL LYMPHOMA
     Dosage: LAST DOSE PRIOR TO SAE ON 19/APR/2012
     Route: 058
     Dates: start: 20120419
  4. MABTHERA [Suspect]
     Route: 042
     Dates: start: 20120321
  5. SERTRALINE HYDROCHLORIDE [Concomitant]
     Indication: ANXIETY
     Dates: start: 20120601
  6. CHLORAMBUCIL [Suspect]
     Indication: B-CELL LYMPHOMA
     Dosage: LAST DOSE PRIOR TO SAE ON 27/MAR/2012
     Route: 048
     Dates: start: 20120321

REACTIONS (1)
  - INJECTION SITE REACTION [None]
